FAERS Safety Report 10006431 (Version 4)
Quarter: 2015Q1

REPORT INFORMATION
  Report Type: Spontaneous
  Country: US (occurrence: US)
  Receive Date: 20140313
  Receipt Date: 20150202
  Transmission Date: 20150720
  Serious: Yes (Other)
  Sender: FDA-Public Use
  Company Number: US-PFIZER INC-2014068405

PATIENT
  Age: 54 Year
  Sex: Female
  Weight: 72.5 kg

DRUGS (8)
  1. LIPITOR [Suspect]
     Active Substance: ATORVASTATIN CALCIUM
     Indication: LOW DENSITY LIPOPROTEIN INCREASED
     Dosage: 40 MG, 1X/DAY
     Route: 048
     Dates: start: 1998, end: 200105
  2. ADVIL [Concomitant]
     Active Substance: IBUPROFEN
     Indication: NEURALGIA
  3. VITAMIN C [Concomitant]
     Active Substance: ASCORBIC ACID
     Indication: IMMUNE ENHANCEMENT THERAPY
     Dosage: UNK, TWO GUMMIES
     Dates: start: 2011
  4. FLONASE [Concomitant]
     Active Substance: FLUTICASONE PROPIONATE
     Indication: HYPERSENSITIVITY
     Dosage: UNK, TWO SPRAYS PER DAY
     Dates: start: 2005
  5. LIPITOR [Suspect]
     Active Substance: ATORVASTATIN CALCIUM
     Indication: BLOOD CHOLESTEROL INCREASED
     Dosage: 40 MG, 1X/DAY
     Route: 048
     Dates: start: 2011
  6. LIPITOR [Suspect]
     Active Substance: ATORVASTATIN CALCIUM
     Indication: CARDIOVASCULAR EVENT PROPHYLAXIS
     Dosage: 40 MG, 1X/DAY
     Route: 048
     Dates: start: 2005, end: 2010
  7. ADVIL [Concomitant]
     Active Substance: IBUPROFEN
     Indication: HEADACHE
     Dosage: UNK, 1-2 TABLETS AS NEEDED
     Dates: start: 2000
  8. FIBERCON [Concomitant]
     Active Substance: CALCIUM POLYCARBOPHIL
     Indication: CONSTIPATION
     Dosage: 2 DF, 1X/DAY
     Dates: start: 200105

REACTIONS (6)
  - Asthenia [Unknown]
  - Type 2 diabetes mellitus [Not Recovered/Not Resolved]
  - Breast cancer female [Not Recovered/Not Resolved]
  - Dizziness [Unknown]
  - Upper limb fracture [Unknown]
  - Diabetic neuropathy [Not Recovered/Not Resolved]

NARRATIVE: CASE EVENT DATE: 201207
